FAERS Safety Report 10303290 (Version 2)
Quarter: 2014Q3

REPORT INFORMATION
  Report Type: Spontaneous
  Country: US (occurrence: US)
  Receive Date: 20140714
  Receipt Date: 20140714
  Transmission Date: 20150326
  Serious: Yes (Other)
  Sender: FDA-Public Use
  Company Number: US-ASTELLAS-2014US007014

PATIENT
  Sex: Female

DRUGS (2)
  1. CALAN [Concomitant]
     Active Substance: VERAPAMIL HYDROCHLORIDE
     Indication: BLOOD PRESSURE
     Route: 065
     Dates: start: 1994
  2. MYRBETRIQ [Suspect]
     Active Substance: MIRABEGRON
     Indication: HYPERTONIC BLADDER
     Route: 048
     Dates: start: 201405, end: 20140615

REACTIONS (4)
  - Palpitations [Unknown]
  - Nausea [Unknown]
  - Headache [Unknown]
  - Heart rate increased [Unknown]
